FAERS Safety Report 9717774 (Version 2)
Quarter: 2013Q4

REPORT INFORMATION
  Report Type: Spontaneous
  Country: FR (occurrence: FR)
  Receive Date: 20131127
  Receipt Date: 20131209
  Transmission Date: 20140711
  Serious: Yes (Hospitalization)
  Sender: FDA-Public Use
  Company Number: FR-GLAXOSMITHKLINE-B0946537A

PATIENT
  Age: 20 Year
  Sex: Female

DRUGS (2)
  1. VENTOLINE [Suspect]
     Indication: ASTHMA
     Route: 055
  2. BECOTIDE [Suspect]
     Indication: ASTHMA
     Route: 055

REACTIONS (5)
  - Epilepsy [Recovered/Resolved]
  - Malaise [Recovered/Resolved]
  - Loss of consciousness [Recovered/Resolved]
  - Tonic clonic movements [Recovered/Resolved]
  - Postictal state [Recovered/Resolved]
